FAERS Safety Report 17847447 (Version 1)
Quarter: 2020Q2

REPORT INFORMATION
  Report Type: Report from Study
  Country: CL (occurrence: CL)
  Receive Date: 20200601
  Receipt Date: 20200601
  Transmission Date: 20200714
  Serious: Yes (Other)
  Sender: FDA-Public Use
  Company Number: NVSC2020CL150348

PATIENT
  Age: 30 Year
  Sex: Female

DRUGS (1)
  1. KISQALI [Suspect]
     Active Substance: RIBOCICLIB
     Indication: BREAST CANCER
     Dosage: 600 MG, UNKNOWN
     Route: 048
     Dates: start: 20200304

REACTIONS (3)
  - Oestradiol [Unknown]
  - Atrioventricular conduction time shortened [Unknown]
  - Blood follicle stimulating hormone [Unknown]

NARRATIVE: CASE EVENT DATE: 20200525
